FAERS Safety Report 26183217 (Version 1)
Quarter: 2025Q4

REPORT INFORMATION
  Report Type: Spontaneous
  Country: CA (occurrence: None)
  Receive Date: 20251221
  Receipt Date: 20251221
  Transmission Date: 20260117
  Serious: Yes (Other)
  Sender: AUROBINDO
  Company Number: CA-AUROBINDO-AUR-APL-2025-065130

PATIENT
  Age: 17 Year
  Sex: Female

DRUGS (2)
  1. CIPROFLOXACIN [Suspect]
     Active Substance: CIPROFLOXACIN
     Indication: Anal abscess
     Dosage: UNK
     Route: 065
  2. REMICADE [Suspect]
     Active Substance: INFLIXIMAB
     Indication: Crohn^s disease
     Dosage: 10 MILLIGRAM/KILOGRAM (1 EVERY 4 WEEKS)

REACTIONS (7)
  - Abdominal pain [Not Recovered/Not Resolved]
  - Affective disorder [Not Recovered/Not Resolved]
  - Anal abscess [Not Recovered/Not Resolved]
  - Blood iron decreased [Not Recovered/Not Resolved]
  - General physical health deterioration [Not Recovered/Not Resolved]
  - Sleep disorder [Not Recovered/Not Resolved]
  - Off label use [Not Recovered/Not Resolved]
